FAERS Safety Report 16979734 (Version 1)
Quarter: 2019Q4

REPORT INFORMATION
  Report Type: Spontaneous
  Country: GB (occurrence: GB)
  Receive Date: 20191031
  Receipt Date: 20191031
  Transmission Date: 20200122
  Serious: Yes (Other)
  Sender: FDA-Public Use
  Company Number: GB-MYLANLABS-2018M1096235

PATIENT
  Age: 41 Year
  Sex: Female

DRUGS (3)
  1. IRON [Concomitant]
     Active Substance: IRON
     Dosage: UNK
  2. CLARITHROMYCIN. [Suspect]
     Active Substance: CLARITHROMYCIN
     Indication: CYST
     Dosage: 500 MILLIGRAM, BID
     Dates: start: 20180526, end: 20180528
  3. KELP                               /00082201/ [Concomitant]
     Active Substance: IODINE
     Dosage: UNK

REACTIONS (1)
  - Breast mass [Recovering/Resolving]

NARRATIVE: CASE EVENT DATE: 20180528
